FAERS Safety Report 20430758 (Version 2)
Quarter: 2022Q2

REPORT INFORMATION
  Report Type: Report from Study
  Country: FR (occurrence: FR)
  Receive Date: 20220204
  Receipt Date: 20220427
  Transmission Date: 20220721
  Serious: Yes (Hospitalization)
  Sender: FDA-Public Use
  Company Number: FR-SERVIER-S21004109

PATIENT

DRUGS (8)
  1. PEGASPARGASE [Suspect]
     Active Substance: PEGASPARGASE
     Indication: Acute lymphocytic leukaemia
     Dosage: 825 IU, QD ON D15 AND D43
     Route: 042
     Dates: start: 20210210, end: 20210217
  2. MERCAPTOPURINE [Suspect]
     Active Substance: MERCAPTOPURINE
     Indication: Acute lymphocytic leukaemia
     Dosage: 38 MG ON D1 TO D14, AND D29 TO D42
     Route: 048
     Dates: start: 20210127, end: 20210316
  3. CYCLOPHOSPHAMIDE [Suspect]
     Active Substance: CYCLOPHOSPHAMIDE
     Indication: Acute lymphocytic leukaemia
     Dosage: 640 MG ON D1 AND D29
     Route: 042
     Dates: start: 20210127, end: 20210303
  4. CYTARABINE [Suspect]
     Active Substance: CYTARABINE
     Indication: Acute lymphocytic leukaemia
     Dosage: 48 MG ON D3 TO D6, D10 TO D13, AND D31 TO D34
     Route: 042
     Dates: start: 20210129, end: 20210315
  5. CYTARABINE [Suspect]
     Active Substance: CYTARABINE
     Dosage: 30 MG ON D3 AND D31
     Route: 037
     Dates: start: 20210129, end: 20210305
  6. VINCRISTINE [Suspect]
     Active Substance: VINCRISTINE
     Indication: Acute lymphocytic leukaemia
     Dosage: 0.9 MG ON D15, D22, AND D43, ONGOING
     Route: 042
     Dates: start: 20210210
  7. METHOTREXATE [Suspect]
     Active Substance: METHOTREXATE
     Indication: Acute lymphocytic leukaemia
     Dosage: 12 MG ON D3 AND D31
     Route: 037
     Dates: start: 20210129, end: 20210305
  8. HYDROCORTISONE [Suspect]
     Active Substance: HYDROCORTISONE
     Indication: Acute lymphocytic leukaemia
     Dosage: 15 MG ON D3 AND D31
     Route: 037
     Dates: start: 20210129, end: 20210305

REACTIONS (1)
  - Staphylococcal sepsis [Recovered/Resolved]

NARRATIVE: CASE EVENT DATE: 20210217
